FAERS Safety Report 16052847 (Version 1)
Quarter: 2019Q1

REPORT INFORMATION
  Report Type: Spontaneous
  Country: US (occurrence: US)
  Receive Date: 20190308
  Receipt Date: 20190308
  Transmission Date: 20190418
  Serious: Yes (Death, Other)
  Sender: FDA-Public Use
  Company Number: US-009507513-1903USA003796

PATIENT
  Age: 64 Year
  Sex: Male

DRUGS (14)
  1. SERTRALINE HYDROCHLORIDE. [Suspect]
     Active Substance: SERTRALINE HYDROCHLORIDE
     Dosage: ROUTE: INGESTION, CAUSE RANK: 1
     Route: 048
  2. LAMOTRIGINE. [Suspect]
     Active Substance: LAMOTRIGINE
     Dosage: ROUTE: INGESTION, CAUSE RANK: 6
     Route: 048
  3. PREGABALIN. [Suspect]
     Active Substance: PREGABALIN
     Dosage: ROUTE: INGESTION, CAUSE RANK: 9
     Route: 048
  4. RIVAROXABAN [Suspect]
     Active Substance: RIVAROXABAN
     Dosage: ROUTE: INGESTION, CAUSE RANK: 12
     Route: 048
  5. SUMATRIPTAN. [Suspect]
     Active Substance: SUMATRIPTAN
     Dosage: ROUTE: INGESTION, CAUSE RANK: 2
     Route: 048
  6. PRINIVIL [Suspect]
     Active Substance: LISINOPRIL
     Dosage: ROUTE: INGESTION, CAUSE RANK: 7
     Route: 048
  7. ADALIMUMAB [Suspect]
     Active Substance: ADALIMUMAB
     Dosage: ROUTE: INGESTION, CAUSE RANK: 4
     Route: 048
  8. LORAZEPAM. [Suspect]
     Active Substance: LORAZEPAM
     Dosage: ROUTE: INGESTION, CAUSE RANK: 8
     Route: 048
  9. CYCLOBENZAPRINE HYDROCHLORIDE. [Suspect]
     Active Substance: CYCLOBENZAPRINE HYDROCHLORIDE
     Dosage: ROUTE: INGESTION, CAUSE RANK: 5
     Route: 048
  10. METOPROLOL. [Suspect]
     Active Substance: METOPROLOL
     Dosage: ROUTE: INGESTION, CAUSE RANK: 10
     Route: 048
  11. TEMAZEPAM. [Suspect]
     Active Substance: TEMAZEPAM
     Dosage: ROUTE: INGESTION, CAUSE RANK: 11
     Route: 048
  12. OMEPRAZOLE. [Suspect]
     Active Substance: OMEPRAZOLE
     Dosage: ROUTE: INGESTION, CAUSE RANK: 13
     Route: 048
  13. MERCAPTOPURINE. [Suspect]
     Active Substance: MERCAPTOPURINE
     Dosage: ROUTE: INGESTION, CAUSE RANK: 3
     Route: 048
  14. CORTICOSTEROIDS (UNSPECIFIED) [Suspect]
     Active Substance: UNSPECIFIED INGREDIENT
     Dosage: ROUTE: INGESTION, CAUSE RANK: 14
     Route: 048

REACTIONS (1)
  - Suspected suicide attempt [Fatal]
